FAERS Safety Report 23298750 (Version 1)
Quarter: 2023Q4

REPORT INFORMATION
  Report Type: Report from Study
  Country: CA (occurrence: CA)
  Receive Date: 20231214
  Receipt Date: 20231214
  Transmission Date: 20240110
  Serious: Yes (Hospitalization)
  Sender: FDA-Public Use
  Company Number: CA-ABBVIE-5532772

PATIENT
  Sex: Male

DRUGS (1)
  1. RINVOQ [Suspect]
     Active Substance: UPADACITINIB
     Indication: Dermatitis atopic
     Dosage: FORM STRENGTH: 15 MILIGRAM
     Route: 048

REACTIONS (11)
  - Asthenia [Not Recovered/Not Resolved]
  - Urinary tract infection [Unknown]
  - Pruritus [Unknown]
  - Pyrexia [Unknown]
  - SARS-CoV-2 test positive [Unknown]
  - Skin disorder [Unknown]
  - Blood creatine phosphokinase increased [Unknown]
  - Dysuria [Unknown]
  - Pollakiuria [Unknown]
  - Urticaria [Unknown]
  - Mobility decreased [Unknown]

NARRATIVE: CASE EVENT DATE: 20230101
